FAERS Safety Report 10364076 (Version 2)
Quarter: 2014Q3

REPORT INFORMATION
  Report Type: Spontaneous
  Country: BR (occurrence: BR)
  Receive Date: 20140806
  Receipt Date: 20140806
  Transmission Date: 20150326
  Serious: Yes (Other)
  Sender: FDA-Public Use
  Company Number: BR-ABBVIE-14K-020-1259935-00

PATIENT
  Age: 37 Year
  Sex: Male
  Weight: 70 kg

DRUGS (2)
  1. HUMIRA [Suspect]
     Active Substance: ADALIMUMAB
     Route: 058
     Dates: start: 201407
  2. HUMIRA [Suspect]
     Active Substance: ADALIMUMAB
     Indication: PSORIASIS
     Route: 058
     Dates: start: 201301, end: 201406

REACTIONS (5)
  - Tonsillar ulcer [Recovered/Resolved]
  - Wound infection [Unknown]
  - Leukocytosis [Unknown]
  - Skin lesion [Unknown]
  - Tonsillar ulcer [Recovered/Resolved]

NARRATIVE: CASE EVENT DATE: 2014
